FAERS Safety Report 20128810 (Version 2)
Quarter: 2022Q3

REPORT INFORMATION
  Report Type: Spontaneous
  Country: CA (occurrence: CA)
  Receive Date: 20211130
  Receipt Date: 20220704
  Transmission Date: 20221027
  Serious: Yes (Other)
  Sender: FDA-Public Use
  Company Number: CA-SA-SAC20211116000090

PATIENT
  Age: 66 Year
  Sex: Female

DRUGS (40)
  1. HYDROXYCHLOROQUINE [Suspect]
     Active Substance: HYDROXYCHLOROQUINE
     Indication: Osteoarthritis
     Dosage: 400 MG, QD
     Route: 048
  2. ABATACEPT [Suspect]
     Active Substance: ABATACEPT
     Dosage: UNK
  3. ACETAMINOPHEN [Suspect]
     Active Substance: ACETAMINOPHEN
     Route: 058
  4. ACTEMRA [Suspect]
     Active Substance: TOCILIZUMAB
     Indication: Rheumatoid arthritis
     Dosage: 2912.0 MG
     Route: 042
  5. PREDNISONE [Suspect]
     Active Substance: PREDNISONE
  6. ARAVA [Suspect]
     Active Substance: LEFLUNOMIDE
  7. CETIRIZINE [Suspect]
     Active Substance: CETIRIZINE HYDROCHLORIDE
  8. CHLORHEXIDINE [Suspect]
     Active Substance: CHLORHEXIDINE
  9. CHLORHEXIDINE GLUCONATE [Suspect]
     Active Substance: CHLORHEXIDINE GLUCONATE
  10. CIMZIA [Suspect]
     Active Substance: CERTOLIZUMAB PEGOL
  11. CORTISONE [Suspect]
     Active Substance: CORTISONE
  12. DICLOFENAC [Suspect]
     Active Substance: DICLOFENAC
  13. ENBREL [Suspect]
     Active Substance: ETANERCEPT
  14. FOLIC ACID [Suspect]
     Active Substance: FOLIC ACID
  15. FOSAMAX [Suspect]
     Active Substance: ALENDRONATE SODIUM
  16. HUMIRA [Suspect]
     Active Substance: ADALIMUMAB
  17. LEFLUNOMIDE [Suspect]
     Active Substance: LEFLUNOMIDE
     Route: 048
  18. METHOTREXATE [Suspect]
     Active Substance: METHOTREXATE
  19. MINOCYCLINE [Suspect]
     Active Substance: MINOCYCLINE HYDROCHLORIDE
  20. MORPHINE SULFATE [Suspect]
     Active Substance: MORPHINE SULFATE
  21. ORENCIA [Suspect]
     Active Substance: ABATACEPT
  22. OTEZLA [Suspect]
     Active Substance: APREMILAST
  23. PHTHALYLSULFATHIAZOLE [Suspect]
     Active Substance: PHTHALYLSULFATHIAZOLE
  24. PREDNISONE [Suspect]
     Active Substance: PREDNISONE
  25. PSEUDOEPHEDRINE HYDROCHLORIDE [Suspect]
     Active Substance: PSEUDOEPHEDRINE HYDROCHLORIDE
  26. REMICADE [Suspect]
     Active Substance: INFLIXIMAB
  27. RITUXIMAB [Suspect]
     Active Substance: RITUXIMAB
  28. SULFASALAZINE [Suspect]
     Active Substance: SULFASALAZINE
  29. ADALIMUMAB [Suspect]
     Active Substance: ADALIMUMAB
     Indication: Rheumatoid arthritis
     Dosage: 40 MG
  30. SECUKINUMAB [Suspect]
     Active Substance: SECUKINUMAB
  31. SIMPONI [Suspect]
     Active Substance: GOLIMUMAB
  32. SULFASALAZINE [Suspect]
     Active Substance: SULFASALAZINE
  33. SIRUKUMAB [Suspect]
     Active Substance: SIRUKUMAB
  34. TOCILIZUMAB [Suspect]
     Active Substance: TOCILIZUMAB
  35. WELLBUTRIN [Concomitant]
     Active Substance: BUPROPION HYDROCHLORIDE
  36. XELJANZ [Suspect]
     Active Substance: TOFACITINIB CITRATE
  37. SULFASALAZINE [Concomitant]
     Active Substance: SULFASALAZINE
  38. HYDROMORPHONE HYDROCHLORIDE [Concomitant]
     Active Substance: HYDROMORPHONE HYDROCHLORIDE
  39. DILAUDID [Concomitant]
     Active Substance: HYDROMORPHONE HYDROCHLORIDE
  40. BUPROPION [Concomitant]
     Active Substance: BUPROPION

REACTIONS (53)
  - Burning sensation [Unknown]
  - Dyspepsia [Unknown]
  - Fatigue [Unknown]
  - Influenza like illness [Unknown]
  - Pain [Unknown]
  - Drug ineffective [Unknown]
  - Abdominal discomfort [Unknown]
  - Alopecia [Unknown]
  - Arthralgia [Unknown]
  - Anti-cyclic citrullinated peptide antibody positive [Unknown]
  - Arthropathy [Unknown]
  - Blister [Unknown]
  - Confusional state [Unknown]
  - Contusion [Unknown]
  - Contraindicated product administered [Unknown]
  - Discomfort [Unknown]
  - Drug ineffective [Unknown]
  - Drug intolerance [Unknown]
  - Duodenal ulcer perforation [Unknown]
  - Dyspnoea [Unknown]
  - Fatigue [Unknown]
  - Folliculitis [Unknown]
  - Gastrointestinal disorder [Unknown]
  - Glossodynia [Unknown]
  - Hand deformity [Unknown]
  - Helicobacter infection [Unknown]
  - Hepatic enzyme increased [Unknown]
  - Hypersensitivity [Unknown]
  - Ill-defined disorder [Unknown]
  - Impaired healing [Unknown]
  - Infection [Unknown]
  - Infusion related reaction [Unknown]
  - Irritable bowel syndrome [Unknown]
  - Joint swelling [Unknown]
  - Lower respiratory tract infection [Unknown]
  - Muscle injury [Unknown]
  - Nasopharyngitis [Unknown]
  - Pain [Unknown]
  - Pemphigus [Unknown]
  - Pericarditis [Unknown]
  - Peripheral swelling [Unknown]
  - Pregnancy [Unknown]
  - Pruritus [Unknown]
  - Pyrexia [Unknown]
  - Rash [Unknown]
  - Rheumatoid arthritis [Unknown]
  - Sinusitis [Unknown]
  - Sleep disorder due to general medical condition, insomnia type [Unknown]
  - Swelling [Unknown]
  - Synovitis [Unknown]
  - Systemic lupus erythematosus [Unknown]
  - Therapeutic product effect decreased [Unknown]
  - Weight increased [Unknown]
